FAERS Safety Report 4787042-1 (Version None)
Quarter: 2005Q3

REPORT INFORMATION
  Report Type: 
  Country: None (occurrence: None)
  Receive Date: 20050930
  Receipt Date: 20050810
  Transmission Date: 20060218
  Serious: Yes (Death)
  Sender: FDA-Public Use
  Company Number: S04-UKI-08243-01

PATIENT
  Age: 17 Year
  Sex: Male

DRUGS (1)
  1. CIPRALEX (ESCITALOPRAM) [Suspect]

REACTIONS (4)
  - ALCOHOL USE [None]
  - COMPLETED SUICIDE [None]
  - DEPRESSION [None]
  - VICTIM OF HOMICIDE [None]
